FAERS Safety Report 17605323 (Version 1)
Quarter: 2020Q1

REPORT INFORMATION
  Report Type: Report from Study
  Country: US (occurrence: US)
  Receive Date: 20200331
  Receipt Date: 20200331
  Transmission Date: 20200409
  Serious: Yes (Death, Life-Threatening, Hospitalization)
  Sender: FDA-Public Use
  Company Number: US-JNJFOC-NSADSS2001036074

PATIENT
  Age: 49 Year
  Sex: Male
  Weight: 60.4 kg

DRUGS (1)
  1. CISAPRIDE [Suspect]
     Active Substance: CISAPRIDE
     Indication: GASTROINTESTINAL HYPOMOTILITY
     Route: 048
     Dates: start: 20010216, end: 20011203

REACTIONS (3)
  - Cardiogenic shock [Recovered/Resolved]
  - Death [Fatal]
  - Pneumonia aspiration [Recovered/Resolved]

NARRATIVE: CASE EVENT DATE: 20011114
